FAERS Safety Report 14263939 (Version 1)
Quarter: 2017Q4

REPORT INFORMATION
  Report Type: Spontaneous
  Country: US (occurrence: US)
  Receive Date: 20171208
  Receipt Date: 20171208
  Transmission Date: 20180321
  Serious: No
  Sender: FDA-Public Use
  Company Number: US-PTC THERAPEUTICS, INC.-US-2017PTC001253

PATIENT

DRUGS (1)
  1. EMFLAZA [Suspect]
     Active Substance: DEFLAZACORT
     Indication: DUCHENNE MUSCULAR DYSTROPHY
     Dosage: 18.2 MG, QD
     Route: 048
     Dates: start: 20170701

REACTIONS (10)
  - Sinusitis [Not Recovered/Not Resolved]
  - Screaming [Not Recovered/Not Resolved]
  - Abnormal behaviour [Not Recovered/Not Resolved]
  - Anxiety [Unknown]
  - Head injury [Unknown]
  - Fatigue [Not Recovered/Not Resolved]
  - Ear infection [Not Recovered/Not Resolved]
  - Psychomotor hyperactivity [Unknown]
  - Drug administration error [Unknown]
  - Fall [Unknown]

NARRATIVE: CASE EVENT DATE: 201708
